FAERS Safety Report 4748003-1 (Version None)
Quarter: 2005Q3

REPORT INFORMATION
  Report Type: 
  Country: None (occurrence: None)
  Receive Date: 20050818
  Receipt Date: 20040326
  Transmission Date: 20060218
  Serious: Yes (Other)
  Sender: FDA-Public Use
  Company Number: GB-AMGEN-US071509

PATIENT
  Sex: Female

DRUGS (6)
  1. ENBREL [Suspect]
     Indication: RHEUMATOID ARTHRITIS
     Route: 058
     Dates: start: 20031024, end: 20040201
  2. LANSOPRAZOLE [Concomitant]
  3. NARATRIPTAN [Concomitant]
  4. PARACETAMOL [Concomitant]
  5. DIHYDROCODEINE [Concomitant]
  6. PROCHLORPERAZINE [Concomitant]

REACTIONS (2)
  - CONDITION AGGRAVATED [None]
  - DEAFNESS NEUROSENSORY [None]
